FAERS Safety Report 7133534-X (Version None)
Quarter: 2010Q4

REPORT INFORMATION
  Report Type: 
  Country: None (occurrence: None)
  Receive Date: 20101202
  Receipt Date: 20101129
  Transmission Date: 20110411
  Serious: Yes (Other)
  Sender: FDA-Public Use
  Company Number: US-PFIZER INC-2010159953

PATIENT
  Sex: Male
  Weight: 95.238 kg

DRUGS (5)
  1. ZYVOX [Suspect]
     Indication: PEAU D'ORANGE
     Dosage: 600 MG, 2X/DAY
     Route: 048
     Dates: start: 20101118, end: 20101123
  2. ZYVOX [Suspect]
     Indication: STAPHYLOCOCCAL INFECTION
  3. CLINDAMYCIN [Concomitant]
     Dosage: 150 MG, 3X/DAY
  4. ATENOLOL [Concomitant]
     Indication: HYPERTENSION
     Dosage: 50 MG, 1X/DAY
  5. ACIPHEX [Concomitant]
     Indication: ABDOMINAL DISCOMFORT
     Dosage: 20 MG, 1X/DAY

REACTIONS (5)
  - ABDOMINAL DISCOMFORT [None]
  - GLOSSODYNIA [None]
  - OROPHARYNGEAL PAIN [None]
  - PARAESTHESIA ORAL [None]
  - SWOLLEN TONGUE [None]
